FAERS Safety Report 7308084-8 (Version None)
Quarter: 2011Q1

REPORT INFORMATION
  Report Type: 
  Country: None (occurrence: None)
  Receive Date: 20110223
  Receipt Date: 20110214
  Transmission Date: 20110831
  Serious: Yes (Hospitalization)
  Sender: FDA-Public Use
  Company Number: JP-JNJFOC-20110205023

PATIENT
  Age: 49 Year
  Sex: Female
  Weight: 90 kg

DRUGS (6)
  1. REMICADE [Suspect]
     Route: 042
  2. REMICADE [Suspect]
     Indication: PSORIATIC ARTHROPATHY
     Route: 042
  3. CYCLOSPORINE [Concomitant]
  4. ETRETINATE [Concomitant]
     Route: 048
  5. SALAZOSULFAPYRIDINE [Concomitant]
  6. STEROIDS NOS [Concomitant]

REACTIONS (2)
  - PSEUDOLYMPHOMA [None]
  - ARTHRALGIA [None]
